FAERS Safety Report 4526183-0 (Version None)
Quarter: 2004Q4

REPORT INFORMATION
  Report Type: 
  Country: None (occurrence: None)
  Receive Date: 20041210
  Receipt Date: 20041201
  Transmission Date: 20050328
  Serious: Yes (Hospitalization, Disabling)
  Sender: FDA-Public Use
  Company Number: 2004-120831-NL

PATIENT
  Age: 47 Year
  Sex: Female

DRUGS (10)
  1. VECURONIUM BROMIDE [Suspect]
     Indication: MUSCLE RELAXANT THERAPY
     Dosage: 8 MG ONCE
     Route: 042
     Dates: start: 20031205, end: 20031205
  2. PROPOFOL [Suspect]
     Indication: SEDATION
     Dosage: SEE IMAGE
     Route: 042
     Dates: start: 20031205, end: 20031205
  3. PROPOFOL [Suspect]
     Indication: SEDATION
     Dosage: SEE IMAGE
     Route: 042
     Dates: start: 20031205, end: 20031206
  4. FENTANYL CITRATE [Suspect]
     Indication: SEDATION
     Dosage: 50 UG ONCE
     Route: 042
     Dates: start: 20031205, end: 20031205
  5. SEVOFLURANE [Suspect]
     Indication: ANALGESIC EFFECT
     Dates: start: 20031205, end: 20031205
  6. SEVOFLURANE [Suspect]
     Indication: SEDATION
     Dates: start: 20031205, end: 20031205
  7. OXYGEN [Concomitant]
  8. NITROUS OXIDE [Concomitant]
  9. EPHEDRIN [Concomitant]
  10. ATROPINE SULFATE [Concomitant]

REACTIONS (8)
  - APNOEA [None]
  - DRUG INEFFECTIVE [None]
  - DYSTROPHIA MYOTONICA [None]
  - INCREASED UPPER AIRWAY SECRETION [None]
  - POST PROCEDURAL COMPLICATION [None]
  - POSTOPERATIVE RESPIRATORY DISTRESS [None]
  - SPUTUM RETENTION [None]
  - THERAPY NON-RESPONDER [None]
